FAERS Safety Report 6498052-0 (Version None)
Quarter: 2009Q4

REPORT INFORMATION
  Report Type: 
  Country: None (occurrence: None)
  Receive Date: 20091215
  Receipt Date: 20091209
  Transmission Date: 20100525
  Serious: Yes (Death)
  Sender: FDA-Public Use
  Company Number: PHEH2009US13259

PATIENT
  Sex: Female
  Weight: 63.719 kg

DRUGS (10)
  1. GLEEVEC [Suspect]
     Indication: CHRONIC MYELOID LEUKAEMIA
     Dosage: 400 MG, QD
     Route: 048
     Dates: start: 20090624, end: 20091005
  2. LASIX [Concomitant]
     Dosage: UNK
  3. THYROXIN [Concomitant]
  4. ASPIRIN [Concomitant]
  5. ZOMETA [Concomitant]
  6. AXID [Concomitant]
     Dosage: 50 MG, UNK
  7. TEKTURNA [Concomitant]
     Dosage: 300 MG, UNK
  8. BENZONATATE [Concomitant]
     Dosage: 100 MG, UNK
  9. XANAX [Concomitant]
     Dosage: 0.5 MG, UNK
  10. LOMOTIL [Concomitant]
     Dosage: UNK

REACTIONS (10)
  - BLOOD CREATININE INCREASED [None]
  - BLOOD GLUCOSE INCREASED [None]
  - CARDIAC FAILURE CONGESTIVE [None]
  - COUGH [None]
  - FATIGUE [None]
  - HYPERTENSION [None]
  - OEDEMA PERIPHERAL [None]
  - RASH [None]
  - SUDDEN CARDIAC DEATH [None]
  - TREATMENT NONCOMPLIANCE [None]
